FAERS Safety Report 10036997 (Version 1)
Quarter: 2014Q1

REPORT INFORMATION
  Report Type: Spontaneous
  Country: US (occurrence: US)
  Receive Date: 20140326
  Receipt Date: 20140326
  Transmission Date: 20141002
  Serious: No
  Sender: FDA-Public Use
  Company Number: US-BIOGENIDEC-2014BI026272

PATIENT
  Age: 77 Year
  Sex: Female

DRUGS (5)
  1. TECFIDERA [Suspect]
     Indication: MULTIPLE SCLEROSIS
     Route: 048
     Dates: start: 201310
  2. AMANTADINE [Concomitant]
  3. CLONAZAPAM [Concomitant]
  4. OXYBUTYNIN [Concomitant]
  5. HCTZ [Concomitant]

REACTIONS (1)
  - Dry mouth [Unknown]
